FAERS Safety Report 13938891 (Version 1)
Quarter: 2017Q3

REPORT INFORMATION
  Report Type: Spontaneous
  Country: US (occurrence: US)
  Receive Date: 20170906
  Receipt Date: 20170906
  Transmission Date: 20171127
  Serious: Yes (Life-Threatening, Hospitalization, Disabling)
  Sender: FDA-Public Use
  Company Number: None

PATIENT
  Sex: Male
  Weight: 87.75 kg

DRUGS (5)
  1. COQ10 [Concomitant]
     Active Substance: UBIDECARENONE
  2. VITAMIN C [Concomitant]
     Active Substance: ASCORBIC ACID
  3. VITAMIN B COMPLEX [Concomitant]
     Active Substance: CYANOCOBALAMIN\DEXPANTHENOL\NIACINAMIDE\PYRIDOXINE HYDROCHLORIDE\RIBOFLAVIN 5^-PHOSPHATE SODIUM\THIAMINE HYDROCHLORIDE\VITAMIN B COMPLEX
  4. MAGNESIUM [Concomitant]
     Active Substance: MAGNESIUM
  5. CEPHALEXIN. [Suspect]
     Active Substance: CEPHALEXIN
     Indication: HORDEOLUM
     Dosage: ?          QUANTITY:21 TABLET(S);?
     Route: 048
     Dates: start: 20170904, end: 20170905

REACTIONS (5)
  - Swollen tongue [None]
  - Dysphagia [None]
  - Facial paralysis [None]
  - Swelling face [None]
  - Pharyngeal oedema [None]

NARRATIVE: CASE EVENT DATE: 20170904
